FAERS Safety Report 7132198-9 (Version None)
Quarter: 2010Q4

REPORT INFORMATION
  Report Type: 
  Country: None (occurrence: None)
  Receive Date: 20101130
  Receipt Date: 20101130
  Transmission Date: 20110411
  Serious: No
  Sender: FDA-Public Use
  Company Number: None

PATIENT
  Age: 70 Year
  Sex: Male
  Weight: 61.2356 kg

DRUGS (1)
  1. TERAZOSIN HCL [Suspect]
     Indication: PROSTATISM
     Dosage: 2 CAPS [4 MG] AT BEDTIME

REACTIONS (4)
  - ARTHRALGIA [None]
  - MOVEMENT DISORDER [None]
  - MYALGIA [None]
  - TENDON PAIN [None]
